FAERS Safety Report 7776882-2 (Version None)
Quarter: 2011Q3

REPORT INFORMATION
  Report Type: 
  Country: None (occurrence: None)
  Receive Date: 20110923
  Receipt Date: 20110923
  Transmission Date: 20111222
  Serious: Yes (Hospitalization)
  Sender: FDA-Public Use
  Company Number: None

PATIENT
  Sex: Male
  Weight: 80.28 kg

DRUGS (2)
  1. CARBOPLATIN [Suspect]
     Dosage: 888.31 MG
     Dates: end: 20110912
  2. TAXOL [Suspect]
     Dosage: 392 MG
     Dates: end: 20110912

REACTIONS (5)
  - NEUTROPENIA [None]
  - HYPERGLYCAEMIA [None]
  - PNEUMONIA [None]
  - WHITE BLOOD CELL COUNT DECREASED [None]
  - NON-CARDIAC CHEST PAIN [None]
